FAERS Safety Report 5648962-9 (Version None)
Quarter: 2008Q1

REPORT INFORMATION
  Report Type: 
  Country: None (occurrence: None)
  Receive Date: 20080304
  Receipt Date: 20080201
  Transmission Date: 20080703
  Serious: No
  Sender: FDA-Public Use
  Company Number: US-BAYER-200812473NA

PATIENT
  Age: 63 Year
  Sex: Female

DRUGS (9)
  1. MAGNEVIST [Suspect]
     Indication: NUCLEAR MAGNETIC RESONANCE IMAGING THORACIC
     Route: 042
     Dates: start: 20080113, end: 20080113
  2. SYNTHROID [Concomitant]
  3. ALLEGRA [Concomitant]
  4. PRILOSEC [Concomitant]
  5. ASCORBIC ACID [Concomitant]
  6. BIOTIN [Concomitant]
  7. ADVAIR DISKUS 100/50 [Concomitant]
  8. SPIRIVA [Concomitant]
  9. STEROIDS [Concomitant]
     Indication: PREMEDICATION
     Dates: start: 20080101, end: 20080101

REACTIONS (3)
  - HYPERTENSION [None]
  - PRURITUS [None]
  - RASH [None]
